FAERS Safety Report 5893987-1 (Version None)
Quarter: 2008Q3

REPORT INFORMATION
  Report Type: 
  Country: None (occurrence: None)
  Receive Date: 20080923
  Receipt Date: 20080908
  Transmission Date: 20090109
  Serious: No
  Sender: FDA-Public Use
  Company Number: US-B.I. PHARMACEUTICALS,INC./RIDGEFIELD-2008-BP-14215BP

PATIENT
  Sex: Female

DRUGS (8)
  1. ATROVENT HFA [Suspect]
     Indication: CHRONIC OBSTRUCTIVE PULMONARY DISEASE
     Dosage: 68MCG
     Route: 055
     Dates: start: 20080625, end: 20080908
  2. ALLEGRA [Concomitant]
  3. ATENOLOL [Concomitant]
     Indication: HYPERTENSION
  4. LISINOPRIL [Concomitant]
     Indication: HYPERTENSION
  5. ZOCOR [Concomitant]
  6. FOSAMAX [Concomitant]
  7. MIRALAX [Concomitant]
  8. GLUCOSAMINE [Concomitant]

REACTIONS (4)
  - HEAT RASH [None]
  - HYPERHIDROSIS [None]
  - RASH PRURITIC [None]
  - URTICARIA [None]
